FAERS Safety Report 5708650-7 (Version None)
Quarter: 2008Q2

REPORT INFORMATION
  Report Type: 
  Country: None (occurrence: None)
  Receive Date: 20080417
  Receipt Date: 20080404
  Transmission Date: 20081010
  Serious: Yes (Other)
  Sender: FDA-Public Use
  Company Number: FR-GENENTECH-259175

PATIENT
  Age: 61 Year
  Sex: Female

DRUGS (2)
  1. HERCEPTIN [Suspect]
     Indication: BREAST CANCER METASTATIC
  2. XELODA [Suspect]
     Indication: BREAST CANCER METASTATIC

REACTIONS (3)
  - ACTINOMYCOSIS [None]
  - INFECTION [None]
  - PALMAR-PLANTAR ERYTHRODYSAESTHESIA SYNDROME [None]
